FAERS Safety Report 17817657 (Version 2)
Quarter: 2021Q2

REPORT INFORMATION
  Report Type: Spontaneous
  Country: NL (occurrence: NL)
  Receive Date: 20200522
  Receipt Date: 20210503
  Transmission Date: 20210716
  Serious: Yes (Disabling)
  Sender: FDA-Public Use
  Company Number: NL-TEVA-2020-NL-1238514

PATIENT
  Age: 50 Year
  Sex: Female
  Weight: 78 kg

DRUGS (12)
  1. TOPIRAMAAT CAPSULE 15MG / TOPAMAX SPRINKLE CAPSULE 15MG [Concomitant]
     Dosage: THERAPY START DATE: ASKED BUT UNKNOWN, THERAPY END DATE : ASKED BUT UNKNOWN, 15  MG
  2. BECLOMETASON/FORMOTEROL AEROSOL 200/6UG/DO / FOSTER AEROSOL 200/6MCG/D [Concomitant]
     Dosage: THERAPY START DATE: ASKED BUT UNKNOWN, THERAPY END DATE : ASKED BUT UNKNOWN?, AEROSOL, 200/6 MICROGR
  3. OMEPRAZOL CAPSULE MSR 40MG / BRAND NAME NOT SPECIFIED [Concomitant]
     Active Substance: OMEPRAZOLE
     Dosage: 40 MG (MILLIGRAM), THERAPY START DATE: ASKED BUT UNKNOWN, THERAPY END DATE : ASKED BUT UNKNOWN
  4. PREDNISON TABLET 20MG / BRAND NAME NOT SPECIFIED [Concomitant]
     Active Substance: PREDNISONE
     Dosage: 20 MG (MILLIGRAM), THERAPY START DATE: ASKED BUT UNKNOWN, THERAPY END DATE : ASKED BUT UNKNOWN
  5. MACROGOL POEDER V DRANK 10G / BRAND NAME NOT SPECIFIED [Concomitant]
     Dosage: 10 G (GRAM), THERAPY START DATE: ASKED BUT UNKNOWN, THERAPY END DATE : ASKED BUT UNKNOWN
  6. TIOTROPIUM VERNEVELVLST 2,5UG/DO / SPIRIVA RESPIMAT INHOPL 2,5MCG/DO P [Concomitant]
     Dosage: NEBULIZING FLUID, 2.5 MICROGRAM / DOSE (MICROGRAMS PER DOSE), THERAPY START DATE: ASKED BUT UNKNOWN,
  7. IPRATROPIUM AEROSOL 20UG/DO / ATROVENT AEROSOL 20MCG/DO SPBS 200DO + I [Concomitant]
     Dosage: THERAPY START DATE: ASKED BUT UNKNOWN, THERAPY END DATE : ASKED BUT UNKNOWN?, AEROSOL, 20 MICROGRAM
  8. LEVOFLOXACINE TABLET OMHULD 500MG / BRAND NAME NOT SPECIFIED [Suspect]
     Active Substance: LEVOFLOXACIN
     Indication: BRONCHITIS
     Dosage: 500 MILLIGRAM DAILY;
     Route: 065
     Dates: start: 20200318, end: 20200322
  9. ZOLMITRIPTAN TABLET OMHULD 2,5MG / BRAND NAME NOT SPECIFIED [Concomitant]
     Dosage: 2.5 MG (MILLIGRAMS), THERAPY START DATE: ASKED BUT UNKNOWN, THERAPY END DATE : ASKED BUT UNKNOWN
  10. CITALOPRAM TABLET OMHULD 20MG / BRAND NAME NOT SPECIFIED [Concomitant]
     Active Substance: CITALOPRAM HYDROBROMIDE
     Dosage: 20 MG (MILLIGRAM), THERAPY START DATE: ASKED BUT UNKNOWN, THERAPY END DATE : ASKED BUT UNKNOWN
  11. DESLORATADINE TABLET 5MG / BRAND NAME NOT SPECIFIED [Concomitant]
     Dosage: 5 MG (MILLIGRAM), THERAPY START DATE: ASKED BUT UNKNOWN, THERAPY END DATE : ASKED BUT UNKNOWN
  12. IRBESARTAN TABLET 150MG / BRAND NAME NOT SPECIFIED [Concomitant]
     Active Substance: IRBESARTAN
     Dosage: 150 MG (MILLIGRAM), THERAPY START DATE: ASKED BUT UNKNOWN, THERAPY END DATE : ASKED BUT UNKNOWN

REACTIONS (7)
  - Extrasystoles [Not Recovered/Not Resolved]
  - Tendon pain [Not Recovered/Not Resolved]
  - Pain in extremity [Not Recovered/Not Resolved]
  - Condition aggravated [Not Recovered/Not Resolved]
  - Fatigue [Not Recovered/Not Resolved]
  - Arthralgia [Not Recovered/Not Resolved]
  - Musculoskeletal stiffness [Not Recovered/Not Resolved]
